FAERS Safety Report 24690111 (Version 1)
Quarter: 2024Q4

REPORT INFORMATION
  Report Type: Spontaneous
  Country: US (occurrence: None)
  Receive Date: 20241202
  Receipt Date: 20241202
  Transmission Date: 20250114
  Serious: No
  Sender: Public
  Company Number: None

PATIENT
  Age: 57 Year
  Sex: Female
  Weight: 56.7 kg

DRUGS (1)
  1. RINVOQ [Suspect]
     Active Substance: UPADACITINIB
     Indication: Arthritis enteropathic
     Dosage: FREQUENCY : DAILY;?
     Route: 048
     Dates: start: 202404

REACTIONS (2)
  - Condition aggravated [None]
  - Arthritis enteropathic [None]
